FAERS Safety Report 19786008 (Version 2)
Quarter: 2021Q4

REPORT INFORMATION
  Report Type: Spontaneous
  Country: US (occurrence: US)
  Receive Date: 20210903
  Receipt Date: 20211006
  Transmission Date: 20220303
  Serious: Yes (Death, Hospitalization)
  Sender: FDA-Public Use
  Company Number: US-ROCHE-2904357

PATIENT
  Age: 74 Year
  Sex: Female

DRUGS (25)
  1. ESBRIET [Suspect]
     Active Substance: PIRFENIDONE
     Indication: Interstitial lung disease
     Route: 048
     Dates: start: 20210715
  2. ESBRIET [Suspect]
     Active Substance: PIRFENIDONE
     Dosage: 3 CAPSULES- TO BE TAKEN AFTER INITIAL TITRATION
     Route: 048
     Dates: start: 20210715, end: 202109
  3. ACETAMINOPHEN [Concomitant]
     Active Substance: ACETAMINOPHEN
  4. ALBUTEROL SULFATE [Concomitant]
     Active Substance: ALBUTEROL SULFATE
  5. AMPYRA [Concomitant]
     Active Substance: DALFAMPRIDINE
  6. ASPIRIN [Concomitant]
     Active Substance: ASPIRIN
  7. ATORVASTATIN [Concomitant]
     Active Substance: ATORVASTATIN
  8. AZATHIOPRINE [Concomitant]
     Active Substance: AZATHIOPRINE
  9. BACLOFEN [Concomitant]
     Active Substance: BACLOFEN
  10. COREG [Concomitant]
     Active Substance: CARVEDILOL
  11. CYMBALTA [Concomitant]
     Active Substance: DULOXETINE HYDROCHLORIDE
  12. DALFAMPRIDINE [Concomitant]
     Active Substance: DALFAMPRIDINE
  13. DEXILANT [Concomitant]
     Active Substance: DEXLANSOPRAZOLE
  14. ATROPINE\DIPHENOXYLATE [Concomitant]
     Active Substance: ATROPINE\DIPHENOXYLATE
     Dosage: 2.5/5
  15. FAMOTIDINE [Concomitant]
     Active Substance: FAMOTIDINE
  16. FERROUS SULFATE [Concomitant]
     Active Substance: FERROUS SULFATE
  17. FLONASE ALLERGY RELIEF [Concomitant]
     Active Substance: FLUTICASONE PROPIONATE
  18. LEVOTHYROXINE [Concomitant]
     Active Substance: LEVOTHYROXINE
  19. LISINOPRIL [Concomitant]
     Active Substance: LISINOPRIL
  20. MODAFINIL [Concomitant]
     Active Substance: MODAFINIL
  21. POTASSIUM CHLORIDE [Concomitant]
     Active Substance: POTASSIUM CHLORIDE
  22. PRIMIDONE [Concomitant]
     Active Substance: PRIMIDONE
  23. SINGULAIR [Concomitant]
     Active Substance: MONTELUKAST SODIUM
  24. VITAMIN D3 [Concomitant]
     Active Substance: CHOLECALCIFEROL
  25. ZYRTEC [Concomitant]
     Active Substance: CETIRIZINE HYDROCHLORIDE

REACTIONS (2)
  - COVID-19 [Fatal]
  - Pneumonia [Unknown]

NARRATIVE: CASE EVENT DATE: 20210801
